FAERS Safety Report 6383932-7 (Version None)
Quarter: 2009Q3

REPORT INFORMATION
  Report Type: 
  Country: None (occurrence: None)
  Receive Date: 20090928
  Receipt Date: 20090916
  Transmission Date: 20100115
  Serious: Yes (Other)
  Sender: FDA-Public Use
  Company Number: 1000009040

PATIENT
  Age: 39 Year
  Sex: Male
  Weight: 85 kg

DRUGS (3)
  1. ESCITALOPRAM OXALATE [Suspect]
     Dosage: (300 MG, ONCE), ORAL
     Route: 048
     Dates: start: 20090916, end: 20090916
  2. DOLOMO N (TABLETS) [Suspect]
     Dosage: (3 DOSAGE FORMS, ONCE), ORAL
     Route: 048
     Dates: start: 20090916, end: 20090916
  3. ALCOHOL [Suspect]
     Dosage: 2 BOTTLES OF BEER, ORAL
     Route: 048
     Dates: start: 20090916, end: 20090916

REACTIONS (4)
  - MULTIPLE DRUG OVERDOSE INTENTIONAL [None]
  - SUICIDE ATTEMPT [None]
  - SYSTOLIC HYPERTENSION [None]
  - TACHYCARDIA [None]
